FAERS Safety Report 4285534-5 (Version None)
Quarter: 2004Q1

REPORT INFORMATION
  Report Type: 
  Country: None (occurrence: None)
  Receive Date: 20040205
  Receipt Date: 20031210
  Transmission Date: 20041129
  Serious: Yes (Death)
  Sender: FDA-Public Use
  Company Number: 200311485JP

PATIENT
  Age: 69 Year
  Sex: Male
  Weight: 76 kg

DRUGS (6)
  1. TAXOTERE [Suspect]
     Indication: SQUAMOUS CELL CARCINOMA
     Route: 041
     Dates: start: 20020828, end: 20020930
  2. RADIATION THERAPY [Suspect]
     Indication: SQUAMOUS CELL CARCINOMA
     Dosage: DOSE: 60GY
     Dates: start: 20020830, end: 20021015
  3. PARAPLATIN [Concomitant]
     Indication: LUNG NEOPLASM MALIGNANT
     Route: 041
     Dates: start: 20020828, end: 20020930
  4. DECADRON [Concomitant]
     Indication: HYPERSENSITIVITY
     Route: 041
     Dates: start: 20020828, end: 20020930
  5. SEROTONE [Concomitant]
     Indication: ANTIEMETIC SUPPORTIVE CARE
     Route: 041
     Dates: start: 20020828, end: 20020930
  6. PRIMPERAN TAB [Concomitant]
     Indication: ANTIEMETIC SUPPORTIVE CARE
     Route: 041
     Dates: start: 20020828, end: 20020828

REACTIONS (4)
  - DRUG INEFFECTIVE [None]
  - DRUG INTERACTION [None]
  - RADIATION PNEUMONITIS [None]
  - RESPIRATORY FAILURE [None]
